FAERS Safety Report 7985781-2 (Version None)
Quarter: 2011Q4

REPORT INFORMATION
  Report Type: 
  Country: None (occurrence: None)
  Receive Date: 20111214
  Receipt Date: 20111130
  Transmission Date: 20120403
  Serious: Yes (Death, Life-Threatening, Hospitalization, Other)
  Sender: FDA-Public Use
  Company Number: 2011MA017042

PATIENT
  Sex: Female
  Weight: 51.2565 kg

DRUGS (1)
  1. DIGOXIN [Suspect]
     Indication: HEART RATE IRREGULAR
     Dosage: 125 MCG;UNK;PO
     Route: 048
     Dates: start: 20070918, end: 20071011

REACTIONS (23)
  - AORTIC DISSECTION [None]
  - DYSPHAGIA [None]
  - OEDEMA PERIPHERAL [None]
  - RESPIRATORY ARREST [None]
  - ARRHYTHMIA [None]
  - BACK PAIN [None]
  - PULMONARY CONGESTION [None]
  - CEREBROVASCULAR ACCIDENT [None]
  - DECREASED APPETITE [None]
  - MULTIPLE INJURIES [None]
  - TOXICITY TO VARIOUS AGENTS [None]
  - FATIGUE [None]
  - ASTHENIA [None]
  - ATRIAL FIBRILLATION [None]
  - IMPAIRED SELF-CARE [None]
  - ECONOMIC PROBLEM [None]
  - BASAL CELL CARCINOMA [None]
  - PLEURAL EFFUSION [None]
  - ANXIETY [None]
  - CIRCULATORY COLLAPSE [None]
  - HYPERTENSION [None]
  - WEIGHT INCREASED [None]
  - ACTIVITIES OF DAILY LIVING IMPAIRED [None]
